FAERS Safety Report 14889365 (Version 2)
Quarter: 2018Q2

REPORT INFORMATION
  Report Type: Spontaneous
  Country: US (occurrence: US)
  Receive Date: 20180514
  Receipt Date: 20180514
  Transmission Date: 20180711
  Serious: No
  Sender: FDA-Public Use
  Company Number: US-JNJFOC-20180413227

PATIENT
  Age: 69 Year
  Sex: Female
  Weight: 90.72 kg

DRUGS (6)
  1. TYLENOL 8HR [Suspect]
     Active Substance: ACETAMINOPHEN
     Indication: ARTHRITIS
     Dosage: ONE TABLET EVERY 6 TO 8 HOURS PER DAY
     Route: 065
     Dates: start: 201801, end: 20180327
  2. TRAMADOL. [Suspect]
     Active Substance: TRAMADOL
     Indication: ARTHRITIS
     Dosage: ONE TABLET EVERY 6 TO 8 HOURS PER DAY
     Route: 065
     Dates: end: 2018
  3. TRAMADOL. [Suspect]
     Active Substance: TRAMADOL
     Indication: ARTHRALGIA
     Dosage: ONE TABLET EVERY 6 TO 8 HOURS PER DAY
     Route: 065
     Dates: end: 2018
  4. TYLENOL 8HR [Suspect]
     Active Substance: ACETAMINOPHEN
     Indication: BACK PAIN
     Dosage: ONE TABLET EVERY 6 TO 8 HOURS PER DAY
     Route: 065
     Dates: start: 201801, end: 20180327
  5. TYLENOL 8HR [Suspect]
     Active Substance: ACETAMINOPHEN
     Indication: ARTHRALGIA
     Dosage: ONE TABLET EVERY 6 TO 8 HOURS PER DAY
     Route: 065
     Dates: start: 201801, end: 20180327
  6. TRAMADOL. [Suspect]
     Active Substance: TRAMADOL
     Indication: BACK PAIN
     Dosage: ONE TABLET EVERY 6 TO 8 HOURS PER DAY
     Route: 065
     Dates: end: 2018

REACTIONS (3)
  - Inappropriate schedule of drug administration [Unknown]
  - Incorrect dose administered [Unknown]
  - Tinnitus [Not Recovered/Not Resolved]

NARRATIVE: CASE EVENT DATE: 20180213
